FAERS Safety Report 24803127 (Version 2)
Quarter: 2025Q2

REPORT INFORMATION
  Report Type: Report from Study
  Country: US (occurrence: US)
  Receive Date: 20250103
  Receipt Date: 20250402
  Transmission Date: 20250716
  Serious: Yes (Other)
  Sender: ACADIA PHARMACEUTICALS
  Company Number: US-ACADIA PHARMACEUTICALS INC.-ACA-2025-PIM-000007

PATIENT
  Age: 68 Year
  Sex: Female

DRUGS (17)
  1. NUPLAZID [Suspect]
     Active Substance: PIMAVANSERIN TARTRATE
     Indication: Parkinson^s disease
     Dosage: 34 MILLIGRAM, QD
     Route: 048
  2. NUPLAZID [Suspect]
     Active Substance: PIMAVANSERIN TARTRATE
     Indication: Hallucination
  3. NUPLAZID [Suspect]
     Active Substance: PIMAVANSERIN TARTRATE
     Indication: Delusion
  4. NUPLAZID [Suspect]
     Active Substance: PIMAVANSERIN TARTRATE
     Indication: Parkinson^s disease psychosis
  5. ALPHA LIPOIC [Concomitant]
  6. CARBIDOPA LEVODOPA [Concomitant]
     Active Substance: CARBIDOPA\LEVODOPA
  7. MAGNESIUM [Concomitant]
     Active Substance: MAGNESIUM
  8. VITAMINS [Concomitant]
     Active Substance: VITAMINS
  9. RYTARY [Concomitant]
     Active Substance: CARBIDOPA\LEVODOPA
  10. RYTARY [Concomitant]
     Active Substance: CARBIDOPA\LEVODOPA
  11. FUROSEMIDE [Concomitant]
     Active Substance: FUROSEMIDE
  12. ROSUVASTATIN [Concomitant]
     Active Substance: ROSUVASTATIN
  13. GABAPENTIN [Concomitant]
     Active Substance: GABAPENTIN
  14. LORAZEPAM [Concomitant]
     Active Substance: LORAZEPAM
  15. MELOXICAM [Concomitant]
     Active Substance: MELOXICAM
  16. METHOCARBAMOL [Concomitant]
     Active Substance: METHOCARBAMOL
  17. QUETIAPINE FUMARATE [Concomitant]
     Active Substance: QUETIAPINE FUMARATE

REACTIONS (8)
  - Dystonia [Not Recovered/Not Resolved]
  - Hallucinations, mixed [Not Recovered/Not Resolved]
  - Dyskinesia [Not Recovered/Not Resolved]
  - Arthralgia [Not Recovered/Not Resolved]
  - Pain in extremity [Not Recovered/Not Resolved]
  - Contusion [Not Recovered/Not Resolved]
  - Balance disorder [Not Recovered/Not Resolved]
  - Fall [Not Recovered/Not Resolved]

NARRATIVE: CASE EVENT DATE: 20241101
